FAERS Safety Report 15297406 (Version 4)
Quarter: 2020Q1

REPORT INFORMATION
  Report Type: Spontaneous
  Country: CA (occurrence: CA)
  Receive Date: 20180820
  Receipt Date: 20200106
  Transmission Date: 20200409
  Serious: Yes (Other)
  Sender: FDA-Public Use
  Company Number: CA-PFIZER INC-2018066861

PATIENT
  Age: 60 Year
  Sex: Male

DRUGS (3)
  1. XELJANZ [Suspect]
     Active Substance: TOFACITINIB CITRATE
     Dosage: 5 MG, 2X/DAY (5 MG, 2X/DAY (PRESCRIBED 5 MG OD)
     Route: 048
     Dates: start: 201809, end: 20181031
  2. XELJANZ [Suspect]
     Active Substance: TOFACITINIB CITRATE
     Dosage: 5 MG, ONCE A DAY
     Route: 048
     Dates: start: 20181031
  3. XELJANZ [Suspect]
     Active Substance: TOFACITINIB CITRATE
     Indication: RHEUMATOID ARTHRITIS
     Dosage: 5 MG, TWICE A DAY
     Route: 048
     Dates: start: 20180208, end: 201809

REACTIONS (10)
  - Retinal detachment [Unknown]
  - Abdominal discomfort [Not Recovered/Not Resolved]
  - Cataract [Unknown]
  - Gastric disorder [Unknown]
  - Hypoaesthesia [Not Recovered/Not Resolved]
  - Inappropriate schedule of product administration [Unknown]
  - Vomiting [Not Recovered/Not Resolved]
  - Loss of personal independence in daily activities [Unknown]
  - Sensory loss [Unknown]
  - Anxiety [Unknown]

NARRATIVE: CASE EVENT DATE: 2018
